FAERS Safety Report 11143355 (Version 1)
Quarter: 2015Q2

REPORT INFORMATION
  Report Type: Spontaneous
  Country: US (occurrence: US)
  Receive Date: 20150528
  Receipt Date: 20150528
  Transmission Date: 20150821
  Serious: Yes (Hospitalization)
  Sender: FDA-Public Use
  Company Number: US-GE HEALTHCARE MEDICAL DIAGNOSTICS-OSCN-PR-1505L-0103

PATIENT
  Age: 61 Year
  Sex: Female

DRUGS (2)
  1. OMNISCAN [Suspect]
     Active Substance: GADODIAMIDE
     Indication: DIAGNOSTIC PROCEDURE
     Route: 037
  2. OMNISCAN [Suspect]
     Active Substance: GADODIAMIDE
     Indication: INVESTIGATION
     Route: 037

REACTIONS (2)
  - Off label use [Recovered/Resolved]
  - Encephalopathy [Recovered/Resolved with Sequelae]
